FAERS Safety Report 13748272 (Version 4)
Quarter: 2025Q4

REPORT INFORMATION
  Report Type: Report from Study
  Country: EU (occurrence: EU)
  Receive Date: 20170713
  Receipt Date: 20251110
  Transmission Date: 20260119
  Serious: Yes (Other)
  Sender: ACCORD
  Company Number: None

PATIENT
  Sex: Female

DRUGS (8)
  1. CISPLATIN [Suspect]
     Active Substance: CISPLATIN
     Indication: Gestational trophoblastic tumour
     Dosage: DAY 1-5
     Route: 042
  2. ETOPOSIDE [Suspect]
     Active Substance: ETOPOSIDE
     Indication: Gestational trophoblastic tumour
     Dosage: DAY 1-5
     Route: 042
  3. METHOTREXATE [Suspect]
     Active Substance: METHOTREXATE
     Indication: Gestational trophoblastic tumour
     Dosage: 2.5 MG, QID FOR 5 DAYS
     Route: 048
  4. BLEOMYCIN [Suspect]
     Active Substance: BLEOMYCIN SULFATE
     Indication: Gestational trophoblastic tumour
     Dosage: DAY 2, 9, AND 16 IN EVERY 3 WEEKS CYCLE
     Route: 042
  5. LEUCOVORIN CALCIUM [Concomitant]
     Active Substance: LEUCOVORIN CALCIUM
     Indication: Drug toxicity prophylaxis
     Route: 048
  6. DACTINOMYCIN [Concomitant]
     Active Substance: DACTINOMYCIN
     Dosage: FOR 5 DAYS (SCHEDULE REPEATED EVERY
     Route: 042
  7. ETOPOSIDE [Suspect]
     Active Substance: ETOPOSIDE
     Indication: Product used for unknown indication
     Dosage: DAY 1-3
     Dates: start: 2010
  8. CISPLATIN [Suspect]
     Active Substance: CISPLATIN
     Indication: Product used for unknown indication
     Dosage: DAY 1-2
     Dates: start: 2010

REACTIONS (5)
  - Anaemia [Unknown]
  - Off label use [Unknown]
  - Respiratory symptom [Unknown]
  - Drug resistance [Unknown]
  - Product use in unapproved indication [Unknown]
